FAERS Safety Report 10071276 (Version 2)
Quarter: 2014Q2

REPORT INFORMATION
  Report Type: Spontaneous
  Country: NL (occurrence: NL)
  Receive Date: 20140410
  Receipt Date: 20140502
  Transmission Date: 20141212
  Serious: No
  Sender: FDA-Public Use
  Company Number: NL-ELI_LILLY_AND_COMPANY-NL201404000852

PATIENT
  Sex: Female

DRUGS (6)
  1. STRATTERA [Suspect]
     Indication: ATTENTION DEFICIT/HYPERACTIVITY DISORDER
     Dosage: 18 MG, QD
     Route: 065
     Dates: start: 20140227, end: 20140306
  2. STRATTERA [Suspect]
     Dosage: 40 MG, QD
     Route: 065
     Dates: start: 20140306, end: 20140325
  3. CONCERTA [Concomitant]
     Indication: ATTENTION DEFICIT/HYPERACTIVITY DISORDER
     Dosage: UNK, UNKNOWN
     Route: 065
     Dates: start: 2011, end: 20140306
  4. CONCERTA [Concomitant]
     Dosage: 18 MG, UNKNOWN
     Route: 065
     Dates: start: 20140306, end: 20140313
  5. CONCERTA [Concomitant]
     Dosage: UNK, UNKNOWN
     Route: 065
     Dates: start: 20140401
  6. RISPERDAL [Concomitant]
     Indication: PRODUCT USED FOR UNKNOWN INDICATION
     Dosage: 1 MG, BID
     Route: 065

REACTIONS (10)
  - Crying [Unknown]
  - Hypoacusis [Recovered/Resolved]
  - Listless [Unknown]
  - Abnormal behaviour [Recovered/Resolved]
  - Impulsive behaviour [Recovered/Resolved]
  - Daydreaming [Unknown]
  - Abdominal pain upper [Recovered/Resolved]
  - Fatigue [Unknown]
  - Decreased appetite [Unknown]
  - Nausea [Unknown]
